FAERS Safety Report 14673756 (Version 3)
Quarter: 2019Q1

REPORT INFORMATION
  Report Type: Spontaneous
  Country: US (occurrence: US)
  Receive Date: 20180323
  Receipt Date: 20190311
  Transmission Date: 20190417
  Serious: Yes (Hospitalization, Other)
  Sender: FDA-Public Use
  Company Number: US-PFIZER INC-2018119563

PATIENT
  Age: 70 Year
  Sex: Female
  Weight: 82 kg

DRUGS (2)
  1. LYRICA [Suspect]
     Active Substance: PREGABALIN
     Indication: NEUROPATHY PERIPHERAL
     Dosage: 75 MG, 3X/DAY
     Route: 048
     Dates: start: 2017
  2. LYRICA [Suspect]
     Active Substance: PREGABALIN
     Indication: NEURALGIA
     Dosage: 75 MG, 2X/DAY
     Route: 048
     Dates: start: 201804

REACTIONS (10)
  - Fall [Recovered/Resolved]
  - Pneumonia [Recovering/Resolving]
  - Intentional product use issue [Unknown]
  - Contusion [Unknown]
  - Bronchitis [Unknown]
  - Malaise [Unknown]
  - Ear discomfort [Unknown]
  - Drug ineffective [Unknown]
  - Ligament sprain [Unknown]
  - Skin laceration [Unknown]
